FAERS Safety Report 9307474 (Version 8)
Quarter: 2016Q4

REPORT INFORMATION
  Report Type: Report from Study
  Country: CA (occurrence: CA)
  Receive Date: 20130524
  Receipt Date: 20161020
  Transmission Date: 20170207
  Serious: Yes (Other)
  Sender: FDA-Public Use
  Company Number: CA-ROCHE-1167553

PATIENT
  Age: 36 Year
  Sex: Female
  Weight: 75 kg

DRUGS (9)
  1. PANTOPRAZOLE [Concomitant]
     Active Substance: PANTOPRAZOLE SODIUM
  2. ACTEMRA [Suspect]
     Active Substance: TOCILIZUMAB
     Indication: RHEUMATOID ARTHRITIS
     Route: 058
     Dates: start: 20140904
  3. ARAVA [Concomitant]
     Active Substance: LEFLUNOMIDE
  4. ACTEMRA [Suspect]
     Active Substance: TOCILIZUMAB
     Route: 042
     Dates: start: 20120119
  5. LUPRON [Concomitant]
     Active Substance: LEUPROLIDE ACETATE
  6. ACTEMRA [Suspect]
     Active Substance: TOCILIZUMAB
     Indication: RHEUMATOID ARTHRITIS
     Route: 042
     Dates: start: 20111216
  7. ACTEMRA [Suspect]
     Active Substance: TOCILIZUMAB
     Route: 042
     Dates: start: 20130510, end: 20140806
  8. ACTEMRA [Suspect]
     Active Substance: TOCILIZUMAB
     Route: 042
     Dates: start: 20130208
  9. CELEBREX [Concomitant]
     Active Substance: CELECOXIB

REACTIONS (5)
  - Hypotension [Unknown]
  - Shoulder arthroplasty [Unknown]
  - Upper respiratory tract infection [Recovered/Resolved]
  - Musculoskeletal disorder [Unknown]
  - Malaise [Unknown]

NARRATIVE: CASE EVENT DATE: 2012
